FAERS Safety Report 5683239-7 (Version None)
Quarter: 2008Q1

REPORT INFORMATION
  Report Type: 
  Country: None (occurrence: None)
  Receive Date: 20080327
  Receipt Date: 20080319
  Transmission Date: 20080703
  Serious: Yes (Other)
  Sender: FDA-Public Use
  Company Number: GB-PFIZER INC-2008025276

PATIENT
  Sex: Female

DRUGS (2)
  1. DETRUSITOL XL [Suspect]
  2. ALL OTHER THERAPEUTIC PRODUCTS [Concomitant]

REACTIONS (2)
  - ALOPECIA [None]
  - HYPOTHYROIDISM [None]
